FAERS Safety Report 20135041 (Version 2)
Quarter: 2022Q1

REPORT INFORMATION
  Report Type: Report from Study
  Country: CA (occurrence: CA)
  Receive Date: 20211201
  Receipt Date: 20220325
  Transmission Date: 20220423
  Serious: Yes (Hospitalization, Other)
  Sender: FDA-Public Use
  Company Number: CA-TAKEDA-2019TUS049001

PATIENT
  Age: 57 Year
  Sex: Male

DRUGS (19)
  1. VEDOLIZUMAB [Suspect]
     Active Substance: VEDOLIZUMAB
     Indication: Colitis ulcerative
     Dosage: 300 MILLIGRAM
     Route: 042
     Dates: start: 20171023
  2. VEDOLIZUMAB [Suspect]
     Active Substance: VEDOLIZUMAB
     Dosage: 300 MILLIGRAM
     Route: 042
  3. VEDOLIZUMAB [Suspect]
     Active Substance: VEDOLIZUMAB
     Dosage: 300 MILLIGRAM
     Route: 042
  4. VEDOLIZUMAB [Suspect]
     Active Substance: VEDOLIZUMAB
     Dosage: 300 MILLIGRAM
     Route: 042
  5. VENOFER [Concomitant]
     Active Substance: IRON SUCROSE
     Dosage: UNK UNK, PRN
  6. ZYLOPRIM [Concomitant]
     Active Substance: ALLOPURINOL
     Indication: Gout
     Dosage: 300 MILLIGRAM, QD
     Route: 048
  7. TENORMIN [Concomitant]
     Active Substance: ATENOLOL
     Dosage: 25 MILLIGRAM, QD
     Route: 048
  8. ATORVASTATIN [Concomitant]
     Active Substance: ATORVASTATIN
     Dosage: 20 MILLIGRAM, QD
     Route: 048
  9. LORAZEPAM [Concomitant]
     Active Substance: LORAZEPAM
     Dosage: 1 MILLIGRAM, BID
     Route: 048
  10. ACETAMINOPHEN [Concomitant]
     Active Substance: ACETAMINOPHEN
     Dosage: UNK
  11. DEMEROL [Concomitant]
     Active Substance: MEPERIDINE HYDROCHLORIDE
     Dosage: 50 MILLIGRAM
  12. SALOFALK                           /00000301/ [Concomitant]
     Dosage: UNK UNK, BID
  13. DOMPERIDONE [Concomitant]
     Active Substance: DOMPERIDONE
     Dosage: UNK UNK, TID
  14. NAPROXEN [Concomitant]
     Active Substance: NAPROXEN
     Dosage: UNK UNK, BID
  15. LANSOPRAZOLE [Concomitant]
     Active Substance: LANSOPRAZOLE
     Dosage: UNK UNK, BID
  16. CHLORMEZANONE [Concomitant]
     Active Substance: CHLORMEZANONE
     Dosage: 45 MILLIGRAM, QD
     Route: 048
  17. ATENOLOL [Concomitant]
     Active Substance: ATENOLOL
     Dosage: 25 MILLIGRAM, QD
  18. ASPIRIN [Concomitant]
     Active Substance: ASPIRIN
     Dosage: 80 MILLIGRAM
     Route: 048
  19. NORVASC [Concomitant]
     Active Substance: AMLODIPINE BESYLATE
     Dosage: 5 MILLIGRAM, QD
     Dates: start: 20211123

REACTIONS (6)
  - Urethral repair [Unknown]
  - Body temperature decreased [Unknown]
  - Postoperative hypertension [Unknown]
  - Blood iron decreased [Unknown]
  - Laryngitis [Unknown]
  - Blood pressure increased [Unknown]

NARRATIVE: CASE EVENT DATE: 20190819
